FAERS Safety Report 9685877 (Version 1)
Quarter: 2013Q4

REPORT INFORMATION
  Report Type: Spontaneous
  Country: ES (occurrence: None)
  Receive Date: 20131108
  Receipt Date: 20131108
  Transmission Date: 20140711
  Serious: Yes (Hospitalization)
  Sender: FDA-Public Use
  Company Number: 2013110005

PATIENT
  Age: 60 Year
  Sex: Female

DRUGS (1)
  1. 5-AMINOSALICYLIC ACID [Suspect]
     Indication: COLITIS ULCERATIVE
     Dosage: (1000 MG, DAILY)

REACTIONS (6)
  - Pyrexia [None]
  - Malaise [None]
  - Pleural effusion [None]
  - Pericardial effusion [None]
  - Pleuropericarditis [None]
  - Hypersensitivity [None]
